FAERS Safety Report 6016949-2 (Version None)
Quarter: 2008Q4

REPORT INFORMATION
  Report Type: 
  Country: None (occurrence: None)
  Receive Date: 20081222
  Receipt Date: 20081217
  Transmission Date: 20090506
  Serious: Yes (Other)
  Sender: FDA-Public Use
  Company Number: CH-ALLERGAN-0816202US

PATIENT
  Sex: Female

DRUGS (1)
  1. BOTOX LYOPHILISAT [Suspect]
     Indication: MUSCLE SPASTICITY
     Dosage: UNK, SINGLE
     Route: 030
     Dates: start: 20080901, end: 20080901

REACTIONS (1)
  - ABORTION SPONTANEOUS [None]
